FAERS Safety Report 9214860 (Version 1)
Quarter: 2013Q2

REPORT INFORMATION
  Report Type: Report from Study
  Country: DE (occurrence: DE)
  Receive Date: 20130405
  Receipt Date: 20130405
  Transmission Date: 20140414
  Serious: Yes (Life-Threatening, Hospitalization)
  Sender: FDA-Public Use
  Company Number: DE-BRISTOL-MYERS SQUIBB COMPANY-18714048

PATIENT
  Age: 56 Year
  Sex: Female
  Weight: 50 kg

DRUGS (5)
  1. CARBOPLATIN [Suspect]
     Indication: OVARIAN CANCER
     Dosage: LAST DOSE 7SEP12
     Route: 042
     Dates: start: 20120525
  2. PACLITAXEL [Suspect]
     Indication: OVARIAN CANCER
     Dosage: LAST DOSE 7SEP12
     Route: 042
     Dates: start: 20120525
  3. BEVACIZUMAB [Suspect]
     Indication: OVARIAN CANCER
     Dosage: LAST DOSE 22FEB13
     Route: 042
     Dates: start: 20120525
  4. L-THYROXINE [Concomitant]
     Indication: HYPOTHYROIDISM
     Dates: start: 20120512, end: 20130314
  5. CHOLESTYRAMINE [Concomitant]
     Indication: DIARRHOEA
     Route: 048
     Dates: start: 20120904

REACTIONS (1)
  - Supraventricular tachycardia [Recovered/Resolved]
